FAERS Safety Report 8100173-3 (Version None)
Quarter: 2012Q1

REPORT INFORMATION
  Report Type: 
  Country: None (occurrence: None)
  Receive Date: 20120129
  Receipt Date: 20111129
  Transmission Date: 20120608
  Serious: No
  Sender: FDA-Public Use
  Company Number: US-ABBOTT-11P-163-0879315-00

PATIENT
  Sex: Male

DRUGS (2)
  1. HUMIRA [Suspect]
     Dosage: 2 PENS ON DAY 15
  2. HUMIRA [Suspect]
     Indication: CROHN'S DISEASE
     Dosage: 4 PENS ON DAY 1
     Route: 058
     Dates: start: 20111101, end: 20111101

REACTIONS (2)
  - ABSCESS [None]
  - STAPHYLOCOCCAL INFECTION [None]
